FAERS Safety Report 5330053-8 (Version None)
Quarter: 2007Q2

REPORT INFORMATION
  Report Type: 
  Country: None (occurrence: None)
  Receive Date: 20070521
  Receipt Date: 20070510
  Transmission Date: 20071010
  Serious: Yes (Hospitalization, Other)
  Sender: FDA-Public Use
  Company Number: US-ELI_LILLY_AND_COMPANY-US200703002931

PATIENT
  Sex: Male
  Weight: 77.097 kg

DRUGS (5)
  1. CLOMIPRAMINE HCL [Concomitant]
     Dates: start: 19880101
  2. SERTRALINE [Concomitant]
     Dates: start: 20020417, end: 20070101
  3. METOPROLOL SUCCINATE [Concomitant]
     Dates: start: 20040202
  4. ZYPREXA [Suspect]
     Dosage: 10 MG, UNK
     Dates: start: 20000101, end: 20070105
  5. ZYPREXA [Suspect]
     Dosage: 20 MG, UNK

REACTIONS (5)
  - ANAEMIA [None]
  - DIABETES MELLITUS [None]
  - DIABETIC KETOACIDOSIS [None]
  - INFECTION [None]
  - PNEUMONIA [None]
